FAERS Safety Report 8147137-1 (Version None)
Quarter: 2012Q1

REPORT INFORMATION
  Report Type: 
  Country: None (occurrence: None)
  Receive Date: 20120218
  Receipt Date: 20110114
  Transmission Date: 20120608
  Serious: No
  Sender: FDA-Public Use
  Company Number: US-ALLERGAN-1100591US

PATIENT
  Age: 49 Year
  Sex: Female
  Weight: 48.98 kg

DRUGS (3)
  1. ALLEGRA [Concomitant]
     Indication: SEASONAL ALLERGY
  2. NASACORT [Concomitant]
     Indication: SEASONAL ALLERGY
     Dosage: UNK
  3. BOTOX COSMETIC [Suspect]
     Indication: PRODUCT USED FOR UNKNOWN INDICATION
     Dosage: UNK

REACTIONS (1)
  - INJECTION SITE MASS [None]
